FAERS Safety Report 5124249-8 (Version None)
Quarter: 2006Q4

REPORT INFORMATION
  Report Type: 
  Country: None (occurrence: None)
  Receive Date: 20061010
  Receipt Date: 20060904
  Transmission Date: 20070319
  Serious: Yes (Disabling)
  Sender: FDA-Public Use
  Company Number: FR-BRISTOL-MYERS SQUIBB COMPANY-13502646

PATIENT
  Age: 71 Year
  Sex: Male

DRUGS (7)
  1. VASTEN [Suspect]
     Indication: HYPERCHOLESTEROLAEMIA
     Route: 048
     Dates: start: 19971001, end: 20060801
  2. PRAVASTATIN [Suspect]
     Indication: HYPERCHOLESTEROLAEMIA
     Route: 048
     Dates: start: 20060915
  3. ASPIRIN [Concomitant]
     Indication: CORONARY ARTERY BYPASS
     Route: 048
     Dates: start: 19970101
  4. SECTRAL [Concomitant]
     Indication: MYOCARDIAL INFARCTION
     Route: 048
     Dates: start: 19970101
  5. TRANDOLAPRIL [Concomitant]
     Indication: CORONARY ARTERY BYPASS
     Route: 048
     Dates: start: 19970101
  6. TANAKAN [Concomitant]
     Dates: start: 19970101
  7. VOLTAREN [Concomitant]

REACTIONS (4)
  - INSOMNIA [None]
  - MYALGIA [None]
  - PAIN IN EXTREMITY [None]
  - TENDONITIS [None]
